FAERS Safety Report 15686931 (Version 1)
Quarter: 2018Q4

REPORT INFORMATION
  Report Type: Report from Study
  Country: US (occurrence: US)
  Receive Date: 20181204
  Receipt Date: 20181204
  Transmission Date: 20190205
  Serious: Yes (Hospitalization)
  Sender: FDA-Public Use
  Company Number: US-GILEAD-2018-0378164

PATIENT
  Sex: Female

DRUGS (14)
  1. BASAGLAR [Suspect]
     Active Substance: INSULIN GLARGINE
     Indication: CYSTIC FIBROSIS
     Dosage: INJ SUBQ AS DIRECTED
     Route: 058
     Dates: start: 20170421
  2. LANTUS [Concomitant]
     Active Substance: INSULIN GLARGINE
     Route: 065
  3. DULERA [Suspect]
     Active Substance: FORMOTEROL FUMARATE DIHYDRATE\MOMETASONE FUROATE
     Indication: CYSTIC FIBROSIS
     Dosage: INHALE 2 PUFFS BID
     Route: 055
     Dates: start: 20170324
  4. IVACAFTOR [Suspect]
     Active Substance: IVACAFTOR
     Indication: CYSTIC FIBROSIS
     Dosage: UNK
     Route: 048
     Dates: start: 20180914
  5. VENTOLIN [Suspect]
     Active Substance: ALBUTEROL SULFATE
     Indication: CYSTIC FIBROSIS
     Dosage: INHALE 2 - 4 PUFFS PO EVERY 4 HOURS AS NEEDED
     Route: 055
     Dates: start: 20170324
  6. ALBUTEROL [SALBUTAMOL] [Suspect]
     Active Substance: ALBUTEROL
     Indication: CYSTIC FIBROSIS
     Dosage: INHALE 1 VIAL EVERY 6 HOURS AS NEEDED
     Route: 055
     Dates: start: 20170324
  7. AZTREONAM LYSINE [Suspect]
     Active Substance: AZTREONAM LYSINE
     Indication: CYSTIC FIBROSIS
     Dosage: INHALE 1 VIAL TID FOR 28 DAYS QOM
     Route: 055
     Dates: start: 20180104
  8. PULMOZYME [Suspect]
     Active Substance: DORNASE ALFA
     Indication: CYSTIC FIBROSIS
     Dosage: INHALE 1 VIAL DAILY
     Route: 055
     Dates: start: 20150416
  9. SERTRALINE [Suspect]
     Active Substance: SERTRALINE HYDROCHLORIDE
     Indication: CYSTIC FIBROSIS
     Dosage: 100MG QD
     Route: 048
     Dates: start: 20180515
  10. CETIRIZINE [Suspect]
     Active Substance: CETIRIZINE HYDROCHLORIDE
     Indication: CYSTIC FIBROSIS
     Dosage: TK 10MG QD
     Route: 065
     Dates: start: 20170922
  11. HUMALOG [Concomitant]
     Active Substance: INSULIN LISPRO
     Route: 065
  12. TEZACAFTOR [Suspect]
     Active Substance: TEZACAFTOR
     Indication: CYSTIC FIBROSIS
     Dosage: TAKE 1 TAB PO EVERY 12 HOURS
     Route: 048
     Dates: start: 20180914
  13. FLUTICASONE. [Suspect]
     Active Substance: FLUTICASONE
     Indication: CYSTIC FIBROSIS
     Dosage: USE 1 SPRAY IN EACH NOSTRIL ONCE DAILY
     Route: 045
  14. SINGULAIR [Concomitant]
     Active Substance: MONTELUKAST SODIUM
     Route: 065

REACTIONS (1)
  - Lung disorder [Unknown]
